FAERS Safety Report 18527128 (Version 2)
Quarter: 2021Q1

REPORT INFORMATION
  Report Type: Report from Study
  Country: FR (occurrence: FR)
  Receive Date: 20201120
  Receipt Date: 20210224
  Transmission Date: 20210419
  Serious: Yes (Death)
  Sender: FDA-Public Use
  Company Number: FR-ROCHE-2717118

PATIENT
  Age: 78 Year
  Sex: Male

DRUGS (10)
  1. TOCILIZUMAB. [Suspect]
     Active Substance: TOCILIZUMAB
     Indication: COVID-19
     Dosage: 20 MG/ML CONCENTRATE FOR SOLUTION FOR INFUSION; CONCENTRATE FOR SOLUTION FOR INFUSION
     Route: 042
     Dates: start: 20201028, end: 20201028
  2. TAZOCILLINE [Concomitant]
     Active Substance: PIPERACILLIN SODIUM\TAZOBACTAM SODIUM
  3. DIPRIVAN [Concomitant]
     Active Substance: PROPOFOL
  4. ATRACURIUM [Concomitant]
     Active Substance: ATRACURIUM
  5. AMIKACINE [Concomitant]
     Active Substance: AMIKACIN
  6. REMIFENTANIL [Concomitant]
     Active Substance: REMIFENTANIL
  7. TOCILIZUMAB. [Suspect]
     Active Substance: TOCILIZUMAB
     Dosage: 20 MG/ML CONCENTRATE FOR SOLUTION FOR INFUSION; CONCENTRATE FOR SOLUTION FOR INFUSION
     Route: 042
     Dates: start: 20201030, end: 20201030
  8. HEPARIN [Concomitant]
     Active Substance: HEPARIN SODIUM
  9. DEXAMETHASONE. [Suspect]
     Active Substance: DEXAMETHASONE
     Indication: COVID-19
     Dosage: 4MG/ML
     Route: 042
  10. NORADRENALINE [Concomitant]
     Active Substance: NOREPINEPHRINE

REACTIONS (2)
  - Septic shock [Fatal]
  - Multiple organ dysfunction syndrome [Fatal]

NARRATIVE: CASE EVENT DATE: 20201105
